FAERS Safety Report 7334491-3 (Version None)
Quarter: 2011Q1

REPORT INFORMATION
  Report Type: 
  Country: None (occurrence: None)
  Receive Date: 20110307
  Receipt Date: 20110208
  Transmission Date: 20110831
  Serious: No
  Sender: FDA-Public Use
  Company Number: US-B.I. PHARMACEUTICALS,INC./RIDGEFIELD-2011-BP-04383BP

PATIENT
  Sex: Male

DRUGS (9)
  1. PREDNISONE [Concomitant]
     Indication: RHEUMATOID ARTHRITIS
     Dosage: 7.5 MG
     Dates: start: 20091201
  2. PRADAXA [Suspect]
     Indication: ATRIAL FIBRILLATION
     Dosage: 300 MG
     Dates: start: 20110119
  3. LASIX [Concomitant]
     Indication: ATRIAL FIBRILLATION
     Dates: start: 20100701
  4. PROTONIX [Concomitant]
     Indication: GASTROOESOPHAGEAL REFLUX DISEASE
     Dosage: 40 MG
     Dates: start: 20100701
  5. CLINORIL [Concomitant]
     Indication: RHEUMATOID ARTHRITIS
     Dates: start: 20091201
  6. SPIRIVA [Suspect]
     Indication: CHRONIC OBSTRUCTIVE PULMONARY DISEASE
     Dosage: 18 MCG
     Route: 055
     Dates: start: 20040101
  7. METOPROLOL [Concomitant]
     Indication: ATRIAL FIBRILLATION
     Dosage: 25 MG
     Dates: start: 20090101
  8. ASA [Concomitant]
     Indication: ATRIAL FIBRILLATION
     Dates: start: 20000101
  9. ZOCOR [Concomitant]
     Indication: BLOOD CHOLESTEROL INCREASED
     Dosage: 80 MG
     Dates: start: 19920101

REACTIONS (2)
  - DEMENTIA [None]
  - EPISTAXIS [None]
